FAERS Safety Report 21238576 (Version 1)
Quarter: 2022Q3

REPORT INFORMATION
  Report Type: Report from Study
  Country: JP (occurrence: JP)
  Receive Date: 20220822
  Receipt Date: 20220822
  Transmission Date: 20221027
  Serious: Yes (Hospitalization, Other)
  Sender: FDA-Public Use
  Company Number: JP-CHUGAI-2022031624AA

PATIENT
  Age: 74 Year
  Sex: Male
  Weight: 53.9 kg

DRUGS (16)
  1. ATEZOLIZUMAB [Suspect]
     Active Substance: ATEZOLIZUMAB
     Indication: Lung adenocarcinoma
     Dosage: 1200 MILLIGRAM
     Route: 041
     Dates: start: 20220714
  2. CARBOPLATIN [Concomitant]
     Active Substance: CARBOPLATIN
     Indication: Lung adenocarcinoma
     Dosage: 640 MILLIGRAM
     Route: 041
     Dates: start: 20220714
  3. PACLITAXEL [Concomitant]
     Active Substance: PACLITAXEL
     Indication: Lung adenocarcinoma
     Dosage: 159 MILLIGRAM
     Route: 041
     Dates: start: 20220714
  4. XARELTO [Concomitant]
     Active Substance: RIVAROXABAN
     Indication: Atrial fibrillation
     Dosage: 15 MILLIGRAM, QD
     Route: 048
  5. PILSICAINIDE HYDROCHLORIDE [Concomitant]
     Active Substance: PILSICAINIDE HYDROCHLORIDE
     Indication: Atrial fibrillation
     Dosage: 50 MILLIGRAM, QD
     Route: 048
  6. IMIDAPRIL HYDROCHLORIDE [Concomitant]
     Active Substance: IMIDAPRIL HYDROCHLORIDE
     Indication: Hypertension
     Dosage: 1 DOSAGE FORM, QD
     Route: 048
  7. MAGNESIUM OXIDE [Concomitant]
     Active Substance: MAGNESIUM OXIDE
     Indication: Constipation
     Dosage: 1 DOSAGE FORM, BID
     Route: 048
  8. CALONAL [Concomitant]
     Active Substance: ACETAMINOPHEN
     Indication: Cancer pain
     Dosage: 500 MILLIGRAM, TID
     Route: 048
     Dates: start: 20220607
  9. PROCHLORPERAZINE MALEATE [Concomitant]
     Active Substance: PROCHLORPERAZINE MALEATE
     Indication: Nausea
     Dosage: 5 MILLIGRAM, TID
     Route: 048
     Dates: start: 20220607
  10. GLYCOPYRROLATE\INDACATEROL\MOMETASONE FUROATE [Concomitant]
     Active Substance: GLYCOPYRROLATE\INDACATEROL\MOMETASONE FUROATE
     Indication: Chronic obstructive pulmonary disease
     Dosage: UNK UNK, QD
     Route: 055
  11. CARBOCYSTEINE [Concomitant]
     Active Substance: CARBOCYSTEINE
     Indication: Chronic obstructive pulmonary disease
     Dosage: 500 MILLIGRAM, BID
     Route: 048
  12. AMBROXOL HYDROCHLORIDE [Concomitant]
     Active Substance: AMBROXOL HYDROCHLORIDE
     Indication: Chronic obstructive pulmonary disease
     Dosage: 45 MILLIGRAM, QD
     Route: 048
  13. KETOPROFEN [Concomitant]
     Active Substance: KETOPROFEN
     Indication: Cancer pain
     Dosage: UNK UNK, QD
     Route: 061
     Dates: start: 20220607
  14. OXYCODONE [Concomitant]
     Active Substance: OXYCODONE
     Indication: Cancer pain
     Dosage: UNK UNK, BID
     Route: 048
     Dates: start: 20220713
  15. URSODIOL [Concomitant]
     Active Substance: URSODIOL
     Indication: Metastases to liver
     Dosage: 200 MILLIGRAM, TID
     Route: 048
     Dates: start: 20220713
  16. SENNOSIDES A AND B [Concomitant]
     Active Substance: SENNOSIDES A AND B
     Indication: Constipation
     Dosage: 24 MILLIGRAM, QD
     Route: 048
     Dates: start: 20220713

REACTIONS (6)
  - Colitis [Not Recovered/Not Resolved]
  - Ileus [Unknown]
  - Metastases to peritoneum [Unknown]
  - Diverticulum intestinal haemorrhagic [Unknown]
  - Bacterial translocation [Unknown]
  - Bacteraemia [Unknown]

NARRATIVE: CASE EVENT DATE: 20220715
